FAERS Safety Report 20222035 (Version 1)
Quarter: 2021Q4

REPORT INFORMATION
  Report Type: Spontaneous
  Country: JP (occurrence: None)
  Receive Date: 20211223
  Receipt Date: 20211223
  Transmission Date: 20220303
  Serious: Yes (Hospitalization)
  Sender: FDA-Public Use
  Company Number: 2021A885788

PATIENT
  Age: 85 Year
  Sex: Female

DRUGS (11)
  1. DAPAGLIFLOZIN [Suspect]
     Active Substance: DAPAGLIFLOZIN
     Indication: Cardiac failure
     Dosage: NUMBER OF SEPARATE DOSAGES UNKNOWN10.0MG UNKNOWN
     Route: 048
  2. ASPIRIN [Concomitant]
     Active Substance: ASPIRIN
     Dosage: NUMBER OF SEPARATE DOSAGES UNKNOWN100.0MG UNKNOWN
     Route: 048
  3. PRASUGREL HYDROCHLORIDE [Concomitant]
     Active Substance: PRASUGREL HYDROCHLORIDE
     Dosage: NUMBER OF SEPARATE DOSAGES UNKNOWN3.75MG UNKNOWN
     Route: 048
  4. RABEPRAZOLE SODIUM [Concomitant]
     Active Substance: RABEPRAZOLE SODIUM
     Dosage: NUMBER OF SEPARATE DOSAGES UNKNOWN10.0MG UNKNOWN
     Route: 048
  5. PITAVASTATIN CALCIUM [Concomitant]
     Active Substance: PITAVASTATIN CALCIUM
     Dosage: NUMBER OF SEPARATE DOSAGES UNKNOWN2.0MG UNKNOWN
     Route: 048
  6. CARVEDILOL [Concomitant]
     Active Substance: CARVEDILOL
     Dosage: NUMBER OF SEPARATE DOSAGES UNKNOWN5.0MG UNKNOWN
     Route: 048
  7. MIRABEGRON [Concomitant]
     Active Substance: MIRABEGRON
     Dosage: NUMBER OF SEPARATE DOSAGES UNKNOWN50.0MG UNKNOWN
     Route: 048
  8. ZOPICLONE [Concomitant]
     Active Substance: ZOPICLONE
     Dosage: NUMBER OF SEPARATE DOSAGES UNKNOWN2.0MG UNKNOWN
     Route: 048
  9. BEPOTASTINE BESYLATE [Concomitant]
     Active Substance: BEPOTASTINE BESYLATE
     Dosage: NUMBER OF SEPARATE DOSAGES UNKNOWN20.0MG UNKNOWN
     Route: 048
  10. AZOSEMIDE [Concomitant]
     Active Substance: AZOSEMIDE
     Dosage: NUMBER OF SEPARATE DOSAGES UNKNOWN60.0MG UNKNOWN
     Route: 065
  11. SPIRONOLACTONE [Concomitant]
     Active Substance: SPIRONOLACTONE
     Dosage: NUMBER OF SEPARATE DOSAGES UNKNOWN25.0MG UNKNOWN
     Route: 065

REACTIONS (4)
  - Acute myocardial infarction [Unknown]
  - Pleural effusion [Unknown]
  - Dehydration [Unknown]
  - Glomerular filtration rate decreased [Unknown]
